FAERS Safety Report 24451623 (Version 2)
Quarter: 2024Q4

REPORT INFORMATION
  Report Type: Spontaneous
  Country: CN (occurrence: CN)
  Receive Date: 20241017
  Receipt Date: 20241021
  Transmission Date: 20250115
  Serious: No
  Sender: NOVARTIS
  Company Number: CN-002147023-NVSC2024CN203188

PATIENT
  Sex: Female

DRUGS (4)
  1. VALSARTAN [Suspect]
     Active Substance: VALSARTAN
     Indication: Paternal exposure before pregnancy
     Dosage: UNK (EXPOSURE VIA PARTNER)
     Route: 050
  2. PIPERAZINE BISFERULATE [Suspect]
     Active Substance: PIPERAZINE BISFERULATE
     Indication: Paternal exposure before pregnancy
     Dosage: UNK (EXPOSURE VIA PARTNER)
     Route: 050
  3. PREDNISONE [Suspect]
     Active Substance: PREDNISONE
     Indication: Paternal exposure before pregnancy
     Dosage: UNK (EXPOSURE VIA PARTNER)
     Route: 050
  4. ASPIRIN [Suspect]
     Active Substance: ASPIRIN
     Indication: Paternal exposure before pregnancy
     Dosage: UNK (EXPOSURE VIA PARTNER)
     Route: 050

REACTIONS (1)
  - Paternal exposure before pregnancy [Unknown]
